FAERS Safety Report 14067259 (Version 2)
Quarter: 2018Q1

REPORT INFORMATION
  Report Type: Spontaneous
  Country: HU (occurrence: HU)
  Receive Date: 20171009
  Receipt Date: 20180130
  Transmission Date: 20180508
  Serious: Yes (Other)
  Sender: FDA-Public Use
  Company Number: HU-ABBVIE-17P-076-2120635-00

PATIENT
  Age: 14 Year
  Sex: Male

DRUGS (1)
  1. HUMIRA [Suspect]
     Active Substance: ADALIMUMAB
     Indication: CROHN^S DISEASE
     Route: 065

REACTIONS (4)
  - Schwannoma [Unknown]
  - Crohn^s disease [Unknown]
  - Joint stiffness [Unknown]
  - Muscle atrophy [Unknown]
